FAERS Safety Report 5094402-0 (Version None)
Quarter: 2006Q3

REPORT INFORMATION
  Report Type: 
  Country: None (occurrence: None)
  Receive Date: 20060830
  Receipt Date: 20060815
  Transmission Date: 20061208
  Serious: Yes (Other)
  Sender: FDA-Public Use
  Company Number: JP200606000925

PATIENT
  Age: 62 Year
  Sex: Male
  Weight: 65.4 kg

DRUGS (12)
  1. GEMZAR [Suspect]
     Indication: PANCREATIC CARCINOMA STAGE IV
     Dosage: 1400 MG, OTHER, INTRAVENOUS; SEE IMAGE
     Route: 042
     Dates: start: 20060515, end: 20060522
  2. GEMZAR [Suspect]
     Indication: PANCREATIC CARCINOMA STAGE IV
     Dosage: 1400 MG, OTHER, INTRAVENOUS; SEE IMAGE
     Route: 042
     Dates: start: 20060616, end: 20060630
  3. DECADRON [Concomitant]
  4. KYTRIL [Concomitant]
  5. CEFAZOLIN SODIUM [Concomitant]
  6. SIGMART (NICORANDIL) [Concomitant]
  7. MEVALOTIN /JPN/ (PRAVASTATIN SODIUM) [Concomitant]
  8. LORELCO [Concomitant]
  9. LANSOPRAZOLE [Concomitant]
  10. MAGLAX /JPN/ (MAGNESIUM OXIDE) [Concomitant]
  11. AMOBAN (ZOPICLONE) [Concomitant]
  12. NOVOLIN N [Concomitant]

REACTIONS (5)
  - ERYTHEMA MULTIFORME [None]
  - LEUKOCYTOCLASTIC VASCULITIS [None]
  - PRURITUS GENERALISED [None]
  - PYREXIA [None]
  - RASH PAPULAR [None]
